FAERS Safety Report 14929692 (Version 3)
Quarter: 2018Q2

REPORT INFORMATION
  Report Type: Spontaneous
  Country: IT (occurrence: IT)
  Receive Date: 20180523
  Receipt Date: 20180619
  Transmission Date: 20180711
  Serious: Yes (Other)
  Sender: FDA-Public Use
  Company Number: IT-MYLANLABS-2018M1033288

PATIENT
  Age: 19 Year
  Sex: Female

DRUGS (29)
  1. LENOGRASTIM [Suspect]
     Active Substance: LENOGRASTIM
     Indication: ACUTE LYMPHOCYTIC LEUKAEMIA
     Dosage: 10 MUG/KG, QD (CYCLIC CYCLY 7)
     Route: 065
  2. CYTARABINE. [Suspect]
     Active Substance: CYTARABINE
     Indication: ACUTE LYMPHOCYTIC LEUKAEMIA
     Dosage: 2000 MG/M2, BID (CYCLIC (QL 2H) CYCLE 7)
     Route: 042
  3. FOLINIC ACID [Suspect]
     Active Substance: LEUCOVORIN
     Indication: ACUTE LYMPHOCYTIC LEUKAEMIA
     Dosage: UNK
     Route: 065
  4. DEXAMETHASONE SODIUM PHOSPHATE. [Suspect]
     Active Substance: DEXAMETHASONE SODIUM PHOSPHATE
     Indication: ACUTE LYMPHOCYTIC LEUKAEMIA
     Dosage: 5 MG/M2, BID (CYCLIC DAY 1-5 (CYCLE 2)
     Route: 048
  5. CYCLOPHOSPHAMIDE. [Suspect]
     Active Substance: CYCLOPHOSPHAMIDE
     Dosage: 300 MG/M2, QD (CYCLIC DAY -3 TO-1)
     Route: 042
  6. FILGRASTIM [Suspect]
     Active Substance: FILGRASTIM
     Dosage: 5 MUG/KG, QD (CYCLIC (CYCLE 3) AND AT 10 MCG/KG DAILY CYCLIC (CYCLE 7)
     Route: 058
  7. FILGRASTIM [Suspect]
     Active Substance: FILGRASTIM
     Dosage: 5 MUG/KG, QD (CYCLIC (CYCLE 2)
     Route: 058
  8. DEXAMETHASONE SODIUM PHOSPHATE. [Suspect]
     Active Substance: DEXAMETHASONE SODIUM PHOSPHATE
     Dosage: 5 MG/M2, BID (CYCLIC DAY 1-5 (CYCLE 2)
     Route: 042
  9. MERCAPTOPURINE. [Suspect]
     Active Substance: MERCAPTOPURINE
     Indication: ACUTE LYMPHOCYTIC LEUKAEMIA
     Dosage: 60 MG/M2, QD (CYCLIC DAY 1-14)
     Route: 048
  10. FILGRASTIM [Suspect]
     Active Substance: FILGRASTIM
     Dosage: 10 ?G/KG, (CYCLE 7), 8 TO HARVEST/ANC GREATER THAN 1.0
  11. FLUDARABINE [Suspect]
     Active Substance: FLUDARABINE PHOSPHATE
     Indication: ACUTE LYMPHOCYTIC LEUKAEMIA
     Dosage: 50 MG/M2, (DAY 3-4-5)
     Route: 065
  12. CYTARABINE. [Suspect]
     Active Substance: CYTARABINE
     Dosage: 75 MG/M2, QD (CYCLIC (CYCLE 2))
     Route: 042
  13. BLINCYTO [Suspect]
     Active Substance: BLINATUMOMAB
     Indication: ACUTE LYMPHOCYTIC LEUKAEMIA
     Dosage: UNK
     Route: 042
  14. METHOTREXATE. [Suspect]
     Active Substance: METHOTREXATE
     Indication: ACUTE LYMPHOCYTIC LEUKAEMIA
     Dosage: 5000 MG/M2, CYCLICAL
     Route: 042
  15. FILGRASTIM [Suspect]
     Active Substance: FILGRASTIM
     Indication: ACUTE LYMPHOCYTIC LEUKAEMIA
     Dosage: 5 MUG/KG, QD
     Route: 058
  16. INOTUZUMAB OZOGAMICIN [Concomitant]
     Active Substance: INOTUZUMAB OZOGAMICIN
     Indication: PRODUCT USED FOR UNKNOWN INDICATION
     Dosage: UNK
  17. LENOGRASTIM [Suspect]
     Active Substance: LENOGRASTIM
     Dosage: 5 MUG/KG, QD
     Route: 058
  18. CYCLOPHOSPHAMIDE. [Suspect]
     Active Substance: CYCLOPHOSPHAMIDE
     Indication: ACUTE LYMPHOCYTIC LEUKAEMIA
     Dosage: 1000 MG/M2, QD (CYCLIC (CYCLE 2)
     Route: 042
  19. IDARUBICIN [Suspect]
     Active Substance: IDARUBICIN
     Indication: ACUTE LYMPHOCYTIC LEUKAEMIA
     Dosage: 12 MG/M2, QD (CYCLIC; DAY1,2 (CYCLE1 AND 2)
     Route: 042
  20. LENOGRASTIM [Suspect]
     Active Substance: LENOGRASTIM
     Dosage: 5 MUG/KG, QD CYCLIC ((CYCLE 3)
     Route: 058
  21. FILGRASTIM [Suspect]
     Active Substance: FILGRASTIM
     Dosage: 5 MUG/KG, DAILY, CYCLIC, ANC{0.5 TO }1.0 (CYCLE 2)
     Route: 058
  22. THIOTEPA. [Suspect]
     Active Substance: THIOTEPA
     Indication: ACUTE LYMPHOCYTIC LEUKAEMIA
     Dosage: 5 MG/KG, (DAY1-2)
     Route: 065
     Dates: start: 20150904
  23. PREDNISONE. [Suspect]
     Active Substance: PREDNISONE
     Indication: ACUTE LYMPHOCYTIC LEUKAEMIA
     Dosage: 20 MG/M2, BID ((QL 2 H CYCLIC)
     Route: 048
  24. CYTARABINE. [Suspect]
     Active Substance: CYTARABINE
     Dosage: 75 MG/M2, QD ((CYCLE 2), DAY 2-5, 9-12)
     Route: 058
  25. VINCRISTINE SULFATE. [Suspect]
     Active Substance: VINCRISTINE SULFATE
     Indication: ACUTE LYMPHOCYTIC LEUKAEMIA
     Dosage: 1.4 MG/M2, CYCLICAL (MAX 2 MG)
     Route: 042
  26. LENOGRASTIM [Suspect]
     Active Substance: LENOGRASTIM
     Dosage: 5 MUG/KG, QD (CYCLIC)
     Route: 058
  27. LENOGRASTIM [Suspect]
     Active Substance: LENOGRASTIM
     Dosage: 10 UG/M2, DAILY, CYCLIC (CYCLE 7), 8 TO HARVEST/ ANC GREATER THAN 1.0
  28. BUSULFAN. [Suspect]
     Active Substance: BUSULFAN
     Indication: ACUTE LYMPHOCYTIC LEUKAEMIA
     Dosage: 9.6 MG/KG, UNK
     Route: 042
  29. DEXAMETHASONE SODIUM PHOSPHATE. [Suspect]
     Active Substance: DEXAMETHASONE SODIUM PHOSPHATE
     Dosage: 5 MG/M2, BID (CYCLIC DAY 1-5, 15-19)
     Route: 042

REACTIONS (3)
  - Seizure [Recovered/Resolved]
  - Neurotoxicity [Recovered/Resolved]
  - Acute lymphocytic leukaemia recurrent [Unknown]
